FAERS Safety Report 7153174-6 (Version None)
Quarter: 2010Q4

REPORT INFORMATION
  Report Type: 
  Country: None (occurrence: None)
  Receive Date: 20101213
  Receipt Date: 20101202
  Transmission Date: 20110411
  Serious: Yes (Other)
  Sender: FDA-Public Use
  Company Number: PT-JNJFOC-20091100822

PATIENT
  Age: 12 Year
  Sex: Female
  Weight: 40 kg

DRUGS (8)
  1. REMICADE [Suspect]
     Indication: CROHN'S DISEASE
     Dosage: WEEK 0
     Route: 042
  2. REMICADE [Suspect]
     Dosage: WEEK 6
     Route: 042
  3. REMICADE [Suspect]
     Dosage: WEEK 2
     Route: 042
  4. REMICADE [Suspect]
     Dosage: WEEK 6
     Route: 042
  5. REMICADE [Suspect]
     Dosage: WEEK 6
     Route: 042
  6. CORTICOSTEROID [Concomitant]
     Indication: PREMEDICATION
  7. ANTICONVULSANT THERAPY [Concomitant]
     Indication: CONVULSION
  8. PAMIDRONATE DISODIUM [Concomitant]
     Indication: OSTEOPOROSIS

REACTIONS (1)
  - HERPES ZOSTER [None]
